FAERS Safety Report 10195902 (Version 1)
Quarter: 2014Q2

REPORT INFORMATION
  Report Type: Spontaneous
  Country: US (occurrence: None)
  Receive Date: 20140521
  Receipt Date: 20140521
  Transmission Date: 20141212
  Serious: Yes (Hospitalization, Other)
  Sender: FDA-Public Use
  Company Number: 2010S1000516

PATIENT
  Age: 43 Year
  Sex: Female

DRUGS (11)
  1. FLEET PHOSPHO-SODA [Suspect]
     Indication: COLONOSCOPY
     Route: 048
     Dates: start: 20020101
  2. VIOXX (ROFECOXIB) [Concomitant]
  3. OXYCONTIN (OXYCODONE HYDROCHLORIDE) [Concomitant]
  4. CERUMENEX [Concomitant]
  5. GUAIFENESIN [Concomitant]
  6. AMOXIL [Concomitant]
  7. TUSSIONEX [Concomitant]
  8. ELAVIL (AMITRIPTYLINE HYDROCHLORIDE) [Concomitant]
  9. VALIUM (DIAZEPAM) [Concomitant]
  10. MONOPRIL [Concomitant]
  11. HUMULIN [Concomitant]

REACTIONS (44)
  - Vulvovaginal pruritus [None]
  - Oedema peripheral [None]
  - Dermatitis [None]
  - Cellulitis [None]
  - Skin infection [None]
  - Dysuria [None]
  - Pollakiuria [None]
  - Abdominal pain [None]
  - Muscle spasms [None]
  - Arthralgia [None]
  - Chills [None]
  - Necrotising fasciitis [None]
  - Diabetes mellitus inadequate control [None]
  - Hypotension [None]
  - Respiratory failure [None]
  - Renal impairment [None]
  - Renal failure acute [None]
  - Blood phosphorus increased [None]
  - Acidosis [None]
  - Haemodialysis [None]
  - Wound [None]
  - Pneumonia [None]
  - Renal tubular necrosis [None]
  - Injury [None]
  - Nausea [None]
  - Haematemesis [None]
  - Abdominal pain upper [None]
  - Hypoglycaemia [None]
  - Haematochezia [None]
  - Dialysis [None]
  - Labelled drug-disease interaction medication error [None]
  - Iron deficiency anaemia [None]
  - Renal failure chronic [None]
  - Thrombosis [None]
  - Diverticulum [None]
  - Haemorrhoids [None]
  - Constipation [None]
  - Rectal haemorrhage [None]
  - Drug effect decreased [None]
  - Blood potassium increased [None]
  - Feeling cold [None]
  - Hypoaesthesia oral [None]
  - Asthenia [None]
  - Blood sodium decreased [None]
